FAERS Safety Report 7642647-5 (Version None)
Quarter: 2011Q3

REPORT INFORMATION
  Report Type: 
  Country: None (occurrence: None)
  Receive Date: 20110728
  Receipt Date: 20110725
  Transmission Date: 20111222
  Serious: Yes (Hospitalization, Other)
  Sender: FDA-Public Use
  Company Number: US-PFIZER INC-2011119802

PATIENT
  Sex: Male

DRUGS (4)
  1. MYSOLINE [Concomitant]
     Indication: NEUROPATHY PERIPHERAL
     Dosage: 25 MG AT HOUR OF SLEEP
     Route: 048
     Dates: start: 20090101
  2. COUMADIN [Concomitant]
     Indication: ATRIAL FIBRILLATION
     Dosage: 7.5 MG, 1X/DAY
     Dates: start: 20050101
  3. LYRICA [Suspect]
     Indication: NEUROPATHY PERIPHERAL
     Dosage: 50-75 MG DAILY
     Route: 048
     Dates: start: 20110425, end: 20110516
  4. ALLOPURINOL [Concomitant]
     Indication: GOUT
     Dosage: 100 UNK, 1X/DAY
     Dates: start: 20040101

REACTIONS (1)
  - PURPURA [None]
